FAERS Safety Report 5752943-4 (Version None)
Quarter: 2008Q2

REPORT INFORMATION
  Report Type: 
  Country: None (occurrence: None)
  Receive Date: 20080529
  Receipt Date: 20080519
  Transmission Date: 20081010
  Serious: Yes (Death, Hospitalization)
  Sender: FDA-Public Use
  Company Number: BR-ABBOTT-08P-020-0451167-00

PATIENT
  Sex: Female
  Weight: 67 kg

DRUGS (3)
  1. HUMIRA [Suspect]
     Indication: RHEUMATOID ARTHRITIS
     Dosage: 1 APPLICATION EVERY 14 DAYS
     Route: 058
     Dates: start: 20070501, end: 20080101
  2. PREDNISONE ACETATE [Concomitant]
     Indication: RHEUMATOID ARTHRITIS
  3. ANTI-INFLAMMATORIES [Concomitant]
     Indication: RHEUMATOID ARTHRITIS

REACTIONS (5)
  - DIARRHOEA [None]
  - GASTROINTESTINAL HAEMORRHAGE [None]
  - ILL-DEFINED DISORDER [None]
  - INTESTINAL OBSTRUCTION [None]
  - RESPIRATORY TRACT INFECTION [None]
